FAERS Safety Report 17777986 (Version 3)
Quarter: 2020Q2

REPORT INFORMATION
  Report Type: Spontaneous
  Country: US (occurrence: US)
  Receive Date: 20200513
  Receipt Date: 20200610
  Transmission Date: 20200714
  Serious: Yes (Life-Threatening, Hospitalization)
  Sender: FDA-Public Use
  Company Number: US-PFIZER INC-2020189063

PATIENT
  Age: 13 Year
  Sex: Female

DRUGS (3)
  1. SERTRALINE HCL [Suspect]
     Active Substance: SERTRALINE HYDROCHLORIDE
     Dosage: UNK (13 OF 50MG PILLS)
     Route: 048
  2. LAMOTRIGINE. [Suspect]
     Active Substance: LAMOTRIGINE
     Dosage: UNK (13 OF 100MG PILLS)
     Route: 048
  3. SERTRALINE HCL [Suspect]
     Active Substance: SERTRALINE HYDROCHLORIDE
     Dosage: 100 MG, DAILY

REACTIONS (3)
  - Unresponsive to stimuli [Recovering/Resolving]
  - Intentional overdose [Recovering/Resolving]
  - Suicide attempt [Recovering/Resolving]
